FAERS Safety Report 4681057-X (Version None)
Quarter: 2005Q2

REPORT INFORMATION
  Report Type: 
  Country: None (occurrence: None)
  Receive Date: 20050601
  Receipt Date: 20050523
  Transmission Date: 20051028
  Serious: Yes (Other)
  Sender: FDA-Public Use
  Company Number: 2005078623

PATIENT
  Age: 66 Year
  Sex: Female

DRUGS (4)
  1. LIPITOR [Suspect]
     Indication: BLOOD CHOLESTEROL
     Dosage: 20 MG (20MG,1 IN 1 D),ORAL
     Route: 048
  2. PLAVIX [Concomitant]
  3. ACETYLSALICYLIC ACID SRT [Concomitant]
  4. TOPROL (METOPROLOL) [Concomitant]

REACTIONS (3)
  - CARDIAC OPERATION [None]
  - UNEVALUABLE EVENT [None]
  - WEIGHT INCREASED [None]
